FAERS Safety Report 19218268 (Version 1)
Quarter: 2021Q2

REPORT INFORMATION
  Report Type: Spontaneous
  Country: JP (occurrence: JP)
  Receive Date: 20210502
  Receipt Date: 20210502
  Transmission Date: 20210717
  Serious: Yes (Hospitalization, Other)
  Sender: FDA-Public Use
  Company Number: JP-009507513-2011JPN000560J

PATIENT
  Age: 70 Year
  Sex: Male
  Weight: 60 kg

DRUGS (16)
  1. APREPITANT. [Concomitant]
     Active Substance: APREPITANT
     Dosage: 80 MILLIGRAM, QD
     Route: 048
  2. AMLODIPINE [Concomitant]
     Active Substance: AMLODIPINE BESYLATE
     Indication: PRODUCT SUBSTITUTION
     Dosage: 5 MILLIGRAM, QD
     Route: 048
     Dates: start: 20200131
  3. ZINC. [Concomitant]
     Active Substance: ZINC
     Indication: HYPOZINCAEMIA
     Dosage: 50 MILLIGRAM, BID
     Route: 048
     Dates: start: 20200826, end: 20201007
  4. KEYTRUDA [Suspect]
     Active Substance: PEMBROLIZUMAB
     Indication: LUNG SQUAMOUS CELL CARCINOMA STAGE IV
     Dosage: 200 MILLIGRAM, Q3W
     Route: 041
     Dates: start: 20200121, end: 20201007
  5. PACLITAXEL. [Concomitant]
     Active Substance: PACLITAXEL
     Indication: LUNG SQUAMOUS CELL CARCINOMA STAGE IV
     Dosage: 150 MILLIGRAM, Q3W
     Route: 041
     Dates: start: 20200121, end: 20200415
  6. BACTRAMIN [Concomitant]
     Active Substance: SULFAMETHOXAZOLE\TRIMETHOPRIM
     Dosage: 1 DOSAGE FORM, BIW
     Route: 048
     Dates: end: 202102
  7. SENNOSIDE [Concomitant]
     Active Substance: SENNOSIDES
     Indication: CONSTIPATION
     Dosage: 24 MILLIGRAM, PRN
     Route: 048
     Dates: start: 20200126
  8. LYRICA [Concomitant]
     Active Substance: PREGABALIN
     Indication: INTERVERTEBRAL DISC PROTRUSION
     Dosage: 75 MILLIGRAM, QD
     Route: 048
     Dates: start: 20200302, end: 20200510
  9. CARBOPLATIN. [Concomitant]
     Active Substance: CARBOPLATIN
     Indication: LUNG SQUAMOUS CELL CARCINOMA STAGE IV
     Dosage: 350 MILLIGRAM, Q3W
     Route: 041
     Dates: start: 20200121, end: 20200401
  10. ETIZOLAM [Concomitant]
     Active Substance: ETIZOLAM
     Indication: SLEEP DISORDER
     Dosage: 0.5 MILLIGRAM, QD
     Route: 048
     Dates: start: 20200210
  11. LYRICA [Concomitant]
     Active Substance: PREGABALIN
     Dosage: 25 MILLIGRAM, BID
     Route: 048
     Dates: start: 20200511
  12. TRAMAL [Concomitant]
     Active Substance: TRAMADOL
     Indication: INTERVERTEBRAL DISC PROTRUSION
     Dosage: 25 MILLIGRAM, TID
     Route: 048
     Dates: start: 20200406
  13. ALENDRONATE [Concomitant]
     Active Substance: ALENDRONATE SODIUM
     Dosage: 35 MILLIGRAM, QW
     Route: 048
     Dates: end: 202102
  14. APREPITANT. [Concomitant]
     Active Substance: APREPITANT
     Indication: THERAPY CHANGE
     Dosage: 125 MILLIGRAM, QD
     Route: 048
  15. EPERISONE HYDROCHLORIDE [Concomitant]
     Active Substance: EPERISONE HYDROCHLORIDE
     Indication: INTERVERTEBRAL DISC PROTRUSION
     Dosage: 50 GRAM, BID
     Route: 048
     Dates: start: 20200420
  16. CALONAL [Concomitant]
     Active Substance: ACETAMINOPHEN
     Indication: ORAL PAIN
     Dosage: 500 MILLIGRAM, TID
     Route: 048
     Dates: start: 20200325, end: 20200414

REACTIONS (4)
  - Renal impairment [Unknown]
  - Malignant neoplasm progression [Unknown]
  - Adrenal insufficiency [Recovered/Resolved with Sequelae]
  - Interstitial lung disease [Recovered/Resolved]

NARRATIVE: CASE EVENT DATE: 20200121
